FAERS Safety Report 9836605 (Version 1)
Quarter: 2013Q4

REPORT INFORMATION
  Report Type: Spontaneous
  Country: US (occurrence: None)
  Receive Date: 20131120
  Receipt Date: 20131120
  Transmission Date: 20140711
  Serious: No
  Sender: FDA-Public Use
  Company Number: 1000049463

PATIENT
  Age: 59 Year
  Sex: Female

DRUGS (5)
  1. VIIBRYD (VILAZODONE HYDROCHLORIDE) (10 MILLIGRAM, TABLETS) [Suspect]
     Indication: DEPRESSION
     Route: 048
     Dates: start: 20130926, end: 20131001
  2. AMBIEN (ZOLPIDEM TARTRATE) [Concomitant]
  3. VITAMIN D (VITAMIN D) [Concomitant]
  4. ELAVIL (AMITRIPTYLINE) [Concomitant]
  5. VITAMIN C (ASCORBIC ACID) [Concomitant]

REACTIONS (1)
  - Tinnitus [None]
